FAERS Safety Report 8459705 (Version 3)
Quarter: 2013Q1

REPORT INFORMATION
  Report Type: Spontaneous
  Country: US (occurrence: US)
  Receive Date: 20120314
  Receipt Date: 20130313
  Transmission Date: 20140127
  Serious: Yes (Other)
  Sender: FDA-Public Use
  Company Number: US-ASTRAZENECA-2011SE54504

PATIENT
  Age: 68 Year
  Sex: Male

DRUGS (18)
  1. TOPROL XL [Suspect]
     Indication: CORONARY ARTERY DISEASE
     Route: 048
  2. TOPROL XL [Suspect]
     Indication: AORTIC ANEURYSM
     Route: 048
  3. TOPROL XL [Suspect]
     Indication: CARDIAC PACEMAKER INSERTION
     Route: 048
  4. TOPROL XL [Suspect]
     Indication: CORONARY ARTERY DISEASE
     Route: 048
  5. TOPROL XL [Suspect]
     Indication: AORTIC ANEURYSM
     Route: 048
  6. TOPROL XL [Suspect]
     Indication: CARDIAC PACEMAKER INSERTION
     Route: 048
  7. TOPROL XL [Suspect]
     Indication: CORONARY ARTERY DISEASE
     Dosage: GENERIC METOPROLOL
     Route: 048
  8. TOPROL XL [Suspect]
     Indication: AORTIC ANEURYSM
     Dosage: GENERIC METOPROLOL
     Route: 048
  9. TOPROL XL [Suspect]
     Indication: CARDIAC PACEMAKER INSERTION
     Dosage: GENERIC METOPROLOL
     Route: 048
  10. TOPROL XL [Suspect]
     Indication: CORONARY ARTERY DISEASE
     Route: 048
  11. TOPROL XL [Suspect]
     Indication: AORTIC ANEURYSM
     Route: 048
  12. TOPROL XL [Suspect]
     Indication: CARDIAC PACEMAKER INSERTION
     Route: 048
  13. TOPROL XL [Suspect]
     Indication: CORONARY ARTERY DISEASE
     Route: 048
  14. TOPROL XL [Suspect]
     Indication: AORTIC ANEURYSM
     Route: 048
  15. TOPROL XL [Suspect]
     Indication: CARDIAC PACEMAKER INSERTION
     Route: 048
  16. TOPROL XL [Suspect]
     Indication: CORONARY ARTERY DISEASE
     Route: 048
  17. TOPROL XL [Suspect]
     Indication: AORTIC ANEURYSM
     Route: 048
  18. TOPROL XL [Suspect]
     Indication: CARDIAC PACEMAKER INSERTION
     Route: 048

REACTIONS (6)
  - Syncope [Unknown]
  - Syncope [Unknown]
  - Cardiac disorder [Unknown]
  - Off label use [Unknown]
  - Intercepted drug prescribing error [Unknown]
  - Therapeutic response decreased [Unknown]
